FAERS Safety Report 22782352 (Version 13)
Quarter: 2025Q4

REPORT INFORMATION
  Report Type: Spontaneous
  Country: IN (occurrence: IN)
  Receive Date: 20230803
  Receipt Date: 20251209
  Transmission Date: 20260117
  Serious: Yes (Hospitalization, Other)
  Sender: PFIZER
  Company Number: IN-PFIZER INC-PV202300133302

PATIENT
  Age: 59 Year
  Sex: Male

DRUGS (5)
  1. LORLATINIB [Suspect]
     Active Substance: LORLATINIB
     Indication: Lung neoplasm malignant
     Dosage: 100 MG OD
     Route: 048
     Dates: start: 20230524
  2. LAVERAN [Concomitant]
     Dosage: UNK
     Dates: start: 20230503
  3. AMLODIPINE BESYLATE [Concomitant]
     Active Substance: AMLODIPINE BESYLATE
     Dosage: UNK
  4. GLIMEPIRIDE\METFORMIN [Concomitant]
     Active Substance: GLIMEPIRIDE\METFORMIN
     Dosage: UNK
  5. PIOSYS [Concomitant]
     Dosage: UNK

REACTIONS (12)
  - Hypoaesthesia oral [Recovered/Resolved]
  - Nausea [Recovered/Resolved]
  - Neuropathy peripheral [Recovered/Resolved]
  - Vertigo [Recovered/Resolved]
  - Blood pressure increased [Recovered/Resolved]
  - Headache [Recovered/Resolved]
  - Dizziness [Recovered/Resolved]
  - Diabetes mellitus [Recovered/Resolved]
  - Hyperthyroidism [Unknown]
  - Heart rate increased [Recovered/Resolved]
  - Dyslipidaemia [Recovered/Resolved]
  - Bronchial hyperreactivity [Recovered/Resolved]

NARRATIVE: CASE EVENT DATE: 20230725
